FAERS Safety Report 13574617 (Version 2)
Quarter: 2017Q2

REPORT INFORMATION
  Report Type: Report from Study
  Country: CO (occurrence: CO)
  Receive Date: 20170523
  Receipt Date: 20170605
  Transmission Date: 20170830
  Serious: Yes (Death, Hospitalization)
  Sender: FDA-Public Use
  Company Number: PHHY2017CO075442

PATIENT
  Sex: Female

DRUGS (1)
  1. VOTRIENT [Suspect]
     Active Substance: PAZOPANIB HYDROCHLORIDE
     Indication: RENAL CELL CARCINOMA
     Dosage: 400 MG, BID
     Route: 048
     Dates: start: 20170224, end: 20170506

REACTIONS (5)
  - Platelet count decreased [Fatal]
  - Renal cancer [Fatal]
  - Malignant neoplasm progression [Fatal]
  - Haemoglobin decreased [Fatal]
  - Blood calcium decreased [Fatal]
